FAERS Safety Report 23017978 (Version 1)
Quarter: 2023Q4

REPORT INFORMATION
  Report Type: Spontaneous
  Country: US (occurrence: US)
  Receive Date: 20231003
  Receipt Date: 20231003
  Transmission Date: 20240109
  Serious: Yes (Other)
  Sender: FDA-Public Use
  Company Number: US-CADILA HEALTHCARE LIMITED-US-ZYDUS-098333

PATIENT

DRUGS (6)
  1. FENTANYL [Interacting]
     Active Substance: FENTANYL
     Indication: Pain
     Dosage: 37 MCG/H, EVERY 72 HOURS
     Route: 062
  2. FENTANYL [Interacting]
     Active Substance: FENTANYL
     Dosage: 50 MCG/H, EVERY 72 HOURS
     Route: 062
  3. CIPROFLOXACIN [Interacting]
     Active Substance: CIPROFLOXACIN
     Indication: Product used for unknown indication
     Dosage: UNK
     Route: 065
  4. HYDROMORPHONE HYDROCHLORIDE [Concomitant]
     Active Substance: HYDROMORPHONE HYDROCHLORIDE
     Indication: Pain
     Dosage: 4 MILLIGRAM
     Route: 065
  5. HYDROMORPHONE HYDROCHLORIDE [Concomitant]
     Active Substance: HYDROMORPHONE HYDROCHLORIDE
     Dosage: UNK, QD, 1-2 DOSE
     Route: 065
  6. AMOXICILLIN\CLAVULANIC ACID [Concomitant]
     Active Substance: AMOXICILLIN\CLAVULANIC ACID
     Indication: Cellulitis
     Dosage: UNK
     Route: 065

REACTIONS (7)
  - Drug interaction [Unknown]
  - Fatigue [Unknown]
  - Muscle twitching [Unknown]
  - Somnolence [Recovering/Resolving]
  - Confusional state [Recovering/Resolving]
  - Myoclonus [Recovering/Resolving]
  - Toxicity to various agents [Unknown]
